FAERS Safety Report 5427500-X (Version None)
Quarter: 2007Q3

REPORT INFORMATION
  Report Type: 
  Country: None (occurrence: None)
  Receive Date: 20070824
  Receipt Date: 20070824
  Transmission Date: 20080115
  Serious: Yes (Hospitalization)
  Sender: FDA-Public Use
  Company Number: None

PATIENT
  Age: 59 Year
  Sex: Male

DRUGS (2)
  1. CLONIDINE [Suspect]
     Indication: HYPERTENSION
     Dosage: 0.3MG QWEEK TOP
     Route: 061
     Dates: start: 19970522, end: 20070821
  2. TERAZOSIN HCL [Suspect]
     Dosage: 10MG HS PO
     Route: 048
     Dates: start: 19980803, end: 20070821

REACTIONS (3)
  - ASTHENIA [None]
  - DIZZINESS [None]
  - HYPOTENSION [None]
